FAERS Safety Report 6306336-1 (Version None)
Quarter: 2009Q3

REPORT INFORMATION
  Report Type: 
  Country: None (occurrence: None)
  Receive Date: 20090812
  Receipt Date: 20090728
  Transmission Date: 20100115
  Serious: Yes (Life-Threatening, Other)
  Sender: FDA-Public Use
  Company Number: SG-GENENTECH-288249

PATIENT
  Age: 42 Year
  Sex: Female

DRUGS (1)
  1. ACTIVASE [Suspect]
     Indication: ISCHAEMIC STROKE
     Dosage: UNK UNK, UNKNOWN
     Route: 042

REACTIONS (3)
  - BRAIN OEDEMA [None]
  - CONVULSION [None]
  - REPERFUSION INJURY [None]
